FAERS Safety Report 24131137 (Version 5)
Quarter: 2024Q4

REPORT INFORMATION
  Report Type: Spontaneous
  Country: US (occurrence: US)
  Receive Date: 20240724
  Receipt Date: 20241211
  Transmission Date: 20250115
  Serious: Yes (Other)
  Sender: BRISTOL-MYERS SQUIBB COMPANY
  Company Number: US-BRISTOL-MYERS SQUIBB COMPANY-2024-116715

PATIENT
  Age: 91 Year
  Sex: Female

DRUGS (2)
  1. POMALYST [Suspect]
     Active Substance: POMALIDOMIDE
     Indication: Plasma cell myeloma
     Dosage: 1 CAPSULE DAILY FOR 21 DAYS THEN 7 DAYS OFF/QD
     Route: 048
  2. XGEVA [Suspect]
     Active Substance: DENOSUMAB
     Indication: Product used for unknown indication

REACTIONS (16)
  - Rash [Unknown]
  - Skin disorder [Unknown]
  - Neuropathy peripheral [Unknown]
  - Dizziness [Unknown]
  - Rash macular [Recovered/Resolved]
  - Pruritus [Not Recovered/Not Resolved]
  - Feeling cold [Unknown]
  - Fatigue [Unknown]
  - Salivary hypersecretion [Unknown]
  - Rhinorrhoea [Unknown]
  - Oral pain [Recovered/Resolved]
  - Increased tendency to bruise [Unknown]
  - Bone pain [Unknown]
  - Arthritis [Unknown]
  - Pain [Unknown]
  - Diarrhoea [Unknown]
